FAERS Safety Report 4612173-6 (Version None)
Quarter: 2005Q1

REPORT INFORMATION
  Report Type: 
  Country: None (occurrence: None)
  Receive Date: 20050308
  Receipt Date: 20041123
  Transmission Date: 20050727
  Serious: Yes (Other)
  Sender: FDA-Public Use
  Company Number: 2004UW24148

PATIENT
  Age: 76 Year
  Sex: Female
  Weight: 79.378 kg

DRUGS (7)
  1. CRESTOR [Suspect]
     Indication: BLOOD CHOLESTEROL INCREASED
     Dosage: 20 MG PO
     Route: 048
  2. POTASSIUM CHLORIDE [Concomitant]
  3. ATENOLOL [Concomitant]
  4. SYNTHROID [Concomitant]
  5. TRIAMTERENE [Concomitant]
  6. BENICAR [Concomitant]
  7. AVANDIA [Concomitant]

REACTIONS (2)
  - BURNING SENSATION [None]
  - RASH [None]
